FAERS Safety Report 25845897 (Version 2)
Quarter: 2025Q4

REPORT INFORMATION
  Report Type: Spontaneous
  Country: EU (occurrence: EU)
  Receive Date: 20250925
  Receipt Date: 20251014
  Transmission Date: 20260117
  Serious: Yes (Hospitalization, Other)
  Sender: RANBAXY
  Company Number: EU-AEMPS-1693202

PATIENT
  Age: 16 Year
  Sex: Female
  Weight: 47.5 kg

DRUGS (2)
  1. ACETAMINOPHEN [Interacting]
     Active Substance: ACETAMINOPHEN
     Indication: Product used for unknown indication
     Dosage: UNK, 50 IBUPROFEN TABLETS WITHOUT SPECIFYING THE QUANTITY
     Route: 048
     Dates: start: 20250219, end: 20250219
  2. IBUPROFEN [Interacting]
     Active Substance: IBUPROFEN
     Indication: Product used for unknown indication
     Dosage: UNK, 50 IBUPROFEN TABLETS WITHOUT SPECIFYING THE QUANTITY
     Route: 048
     Dates: start: 20250219, end: 20250219

REACTIONS (3)
  - Hepatocellular injury [Recovered/Resolved]
  - Intentional overdose [Recovered/Resolved]
  - Suicide attempt [Unknown]

NARRATIVE: CASE EVENT DATE: 20250219
